FAERS Safety Report 4637316-X (Version None)
Quarter: 2005Q2

REPORT INFORMATION
  Report Type: 
  Country: None (occurrence: None)
  Receive Date: 20050328
  Receipt Date: 20041122
  Transmission Date: 20051028
  Serious: No
  Sender: FDA-Public Use
  Company Number: USA041184420

PATIENT
  Sex: Male

DRUGS (3)
  1. STRATTERA [Suspect]
     Indication: ATTENTION DEFICIT/HYPERACTIVITY DISORDER
     Dosage: 20 MG DAY
     Dates: start: 20041117, end: 20041121
  2. AVALIDE [Concomitant]
  3. LEXAPRO [Concomitant]

REACTIONS (2)
  - CONSTIPATION [None]
  - DYSURIA [None]
